FAERS Safety Report 25753130 (Version 1)
Quarter: 2025Q3

REPORT INFORMATION
  Report Type: Spontaneous
  Country: CN (occurrence: CN)
  Receive Date: 20250902
  Receipt Date: 20250902
  Transmission Date: 20251020
  Serious: Yes (Other)
  Sender: BEIGENE
  Company Number: CN-GILEAD-2023-0613811

PATIENT
  Age: 66 Year
  Weight: 67.4 kg

DRUGS (9)
  1. TISLELIZUMAB [Suspect]
     Active Substance: TISLELIZUMAB
     Indication: Lymphodepletion
  2. TISLELIZUMAB [Suspect]
     Active Substance: TISLELIZUMAB
     Indication: Non-Hodgkin^s lymphoma
  3. AXICABTAGENE CILOLEUCEL [Suspect]
     Active Substance: AXICABTAGENE CILOLEUCEL
     Indication: Lymphodepletion
  4. AXICABTAGENE CILOLEUCEL [Suspect]
     Active Substance: AXICABTAGENE CILOLEUCEL
     Indication: Non-Hodgkin^s lymphoma
  5. FLUDARABINE PHOSPHATE [Suspect]
     Active Substance: FLUDARABINE PHOSPHATE
     Indication: Lymphodepletion
  6. FLUDARABINE PHOSPHATE [Suspect]
     Active Substance: FLUDARABINE PHOSPHATE
     Indication: Non-Hodgkin^s lymphoma
  7. CYCLOPHOSPHAMIDE [Suspect]
     Active Substance: CYCLOPHOSPHAMIDE
     Indication: Lymphodepletion
  8. CYCLOPHOSPHAMIDE [Suspect]
     Active Substance: CYCLOPHOSPHAMIDE
     Indication: Non-Hodgkin^s lymphoma
  9. ZANUBRUTINIB [Concomitant]
     Active Substance: ZANUBRUTINIB

REACTIONS (16)
  - Cytokine release syndrome [Unknown]
  - Hypokalaemia [Unknown]
  - Chest discomfort [Unknown]
  - Neutrophil count decreased [Unknown]
  - Hypocalcaemia [Unknown]
  - Cough [Unknown]
  - Pain in extremity [Unknown]
  - Lymphocyte count decreased [Unknown]
  - Hypoalbuminaemia [Unknown]
  - Blood immunoglobulin G decreased [Unknown]
  - White blood cell count decreased [Unknown]
  - C-reactive protein increased [Unknown]
  - Anaemia [Unknown]
  - Platelet count decreased [Unknown]
  - Cytokine increased [Unknown]
  - Off label use [Unknown]
